FAERS Safety Report 18026583 (Version 3)
Quarter: 2020Q3

REPORT INFORMATION
  Report Type: Spontaneous
  Country: JP (occurrence: JP)
  Receive Date: 20200716
  Receipt Date: 20200909
  Transmission Date: 20201103
  Serious: Yes (Death, Other)
  Sender: FDA-Public Use
  Company Number: JP-ROCHE-2641956

PATIENT
  Age: 62 Year
  Sex: Female
  Weight: 53 kg

DRUGS (3)
  1. PACLITAXEL. [Concomitant]
     Active Substance: PACLITAXEL
     Indication: MALIGNANT PERITONEAL NEOPLASM
     Dosage: DOSAGE IS UNCERTAIN FOR 2 COURSES
     Route: 041
     Dates: start: 20200602, end: 20200623
  2. AVASTIN [Suspect]
     Active Substance: BEVACIZUMAB
     Indication: OVARIAN CANCER
     Dosage: DOSAGE IS UNCERTAIN.
     Route: 041
  3. CARBOPLATIN. [Concomitant]
     Active Substance: CARBOPLATIN
     Indication: MALIGNANT PERITONEAL NEOPLASM
     Dosage: DOSAGE IS UNCERTAIN FOR 2 COURSES
     Route: 041
     Dates: start: 20200602, end: 20200623

REACTIONS (4)
  - Tumour necrosis [Unknown]
  - Septic shock [Unknown]
  - Gastrointestinal perforation [Fatal]
  - Disease progression [Fatal]

NARRATIVE: CASE EVENT DATE: 20200627
